FAERS Safety Report 22109785 (Version 1)
Quarter: 2023Q1

REPORT INFORMATION
  Report Type: Spontaneous
  Country: SK (occurrence: SK)
  Receive Date: 20230317
  Receipt Date: 20230317
  Transmission Date: 20230418
  Serious: Yes (Hospitalization, Other)
  Sender: FDA-Public Use
  Company Number: SK-AMGEN-SVKSP2023042133

PATIENT
  Age: 10 Year
  Sex: Male

DRUGS (11)
  1. ADALIMUMAB [Suspect]
     Active Substance: ADALIMUMAB
     Indication: Inflammatory bowel disease
     Dosage: UNK
     Route: 065
  2. RITUXIMAB [Suspect]
     Active Substance: RITUXIMAB
     Indication: Epstein-Barr virus infection reactivation
     Dosage: UNK
     Route: 065
  3. MESALAMINE [Suspect]
     Active Substance: MESALAMINE
     Indication: Inflammatory bowel disease
     Dosage: UNK
     Route: 065
  4. CYCLOSPORINE [Suspect]
     Active Substance: CYCLOSPORINE
     Indication: Inflammatory bowel disease
     Dosage: UNK
     Route: 065
  5. ACYCLOVIR [Suspect]
     Active Substance: ACYCLOVIR
     Indication: Varicella zoster virus infection
     Dosage: UNK
     Route: 065
  6. ACYCLOVIR [Suspect]
     Active Substance: ACYCLOVIR
     Indication: Herpes zoster reactivation
  7. AZATHIOPRINE [Suspect]
     Active Substance: AZATHIOPRINE
     Indication: Inflammatory bowel disease
     Dosage: UNK
     Route: 065
  8. VALGANCICLOVIR [Suspect]
     Active Substance: VALGANCICLOVIR
     Indication: Cytomegalovirus infection reactivation
     Dosage: UNK
     Route: 065
  9. INFLIXIMAB [Concomitant]
     Active Substance: INFLIXIMAB
     Indication: Inflammatory bowel disease
     Dosage: UNK
     Route: 065
  10. FLUDARABINE [Concomitant]
     Active Substance: FLUDARABINE PHOSPHATE
     Dosage: UNK
  11. MELPHALAN [Concomitant]
     Active Substance: MELPHALAN
     Dosage: UNK

REACTIONS (13)
  - Rectal stenosis [Unknown]
  - Cytomegalovirus infection reactivation [Recovering/Resolving]
  - Epstein-Barr virus infection reactivation [Unknown]
  - Acute graft versus host disease in skin [Recovered/Resolved]
  - Growth retardation [Unknown]
  - COVID-19 [Unknown]
  - Abdominal pain [Unknown]
  - Off label use [Unknown]
  - Multiple-drug resistance [Unknown]
  - Gastrointestinal disorder [Unknown]
  - Gene mutation [Unknown]
  - Herpes zoster reactivation [Recovering/Resolving]
  - Urticaria [Recovering/Resolving]
